FAERS Safety Report 9805273 (Version 1)
Quarter: 2014Q1

REPORT INFORMATION
  Report Type: Spontaneous
  Country: US (occurrence: US)
  Receive Date: 20140109
  Receipt Date: 20140109
  Transmission Date: 20141002
  Serious: No
  Sender: FDA-Public Use
  Company Number: US-009507513-1401USA002213

PATIENT
  Sex: Female

DRUGS (2)
  1. VYTORIN [Suspect]
     Indication: BLOOD CHOLESTEROL INCREASED
     Dosage: UNK
     Route: 048
  2. TRAMADOL HYDROCHLORIDE [Concomitant]
     Dosage: 10 MG, AS NEEDED

REACTIONS (2)
  - Drug administration error [Unknown]
  - Myalgia [Recovering/Resolving]
